FAERS Safety Report 11971880 (Version 3)
Quarter: 2016Q1

REPORT INFORMATION
  Report Type: Spontaneous
  Country: US (occurrence: None)
  Receive Date: 20160128
  Receipt Date: 20160307
  Transmission Date: 20160526
  Serious: Yes (Life-Threatening, Hospitalization, Other)
  Sender: FDA-Public Use
  Company Number: US-MDT-ADR-2015-02459

PATIENT
  Age: 56 Year
  Sex: Female

DRUGS (2)
  1. PRIALT [Suspect]
     Active Substance: ZICONOTIDE ACETATE
     Dosage: 4.8MCG/DAY
  2. COMPOUNDED BACLOFEN INTRATHECAL 4000MCG/ML [Suspect]
     Active Substance: BACLOFEN
     Indication: MUSCLE SPASTICITY
     Dosage: 868MCG/DAY

REACTIONS (17)
  - Muscle spasticity [None]
  - Overdose [None]
  - Pain [None]
  - Hypomagnesaemia [None]
  - Delusion [None]
  - Discomfort [None]
  - Mental status changes [None]
  - Muscle spasms [None]
  - Rhabdomyolysis [None]
  - Hallucinations, mixed [None]
  - Haemodilution [None]
  - Hallucination [None]
  - Confusional state [None]
  - Sudden onset of sleep [None]
  - Anaemia [None]
  - Blood creatine phosphokinase increased [None]
  - Hypokalaemia [None]
